FAERS Safety Report 16880611 (Version 1)
Quarter: 2019Q4

REPORT INFORMATION
  Report Type: Spontaneous
  Country: US (occurrence: US)
  Receive Date: 20191002
  Receipt Date: 20191002
  Transmission Date: 20200122
  Serious: Yes (Disabling)
  Sender: FDA-Public Use
  Company Number: None

PATIENT
  Age: 56 Year
  Sex: Female
  Weight: 70.65 kg

DRUGS (11)
  1. OCREVUS [Suspect]
     Active Substance: OCRELIZUMAB
     Indication: MULTIPLE SCLEROSIS
     Dosage: ?          OTHER FREQUENCY:EVERY SIX MONTHS;?
     Route: 042
     Dates: start: 20171103, end: 20190419
  2. CRANBERRY. [Concomitant]
     Active Substance: CRANBERRY
  3. FLUOXETINE [Concomitant]
     Active Substance: FLUOXETINE HYDROCHLORIDE
  4. CYMBALTA [Concomitant]
     Active Substance: DULOXETINE HYDROCHLORIDE
  5. LOSORATAN [Concomitant]
  6. TRIMETHOPRIM. [Concomitant]
     Active Substance: TRIMETHOPRIM
  7. VIT D [Concomitant]
     Active Substance: VITAMIN D NOS
  8. MODAFINIL. [Concomitant]
     Active Substance: MODAFINIL
  9. GABAPENTIN. [Concomitant]
     Active Substance: GABAPENTIN
  10. BACLOFEN. [Concomitant]
     Active Substance: BACLOFEN
  11. PROBIOTIC [Concomitant]
     Active Substance: PROBIOTICS NOS

REACTIONS (4)
  - Alopecia [None]
  - Therapy cessation [None]
  - Alopecia areata [None]
  - Diffuse alopecia [None]

NARRATIVE: CASE EVENT DATE: 20190501
